FAERS Safety Report 9230206 (Version 1)
Quarter: 2013Q2

REPORT INFORMATION
  Report Type: Spontaneous
  Country: US (occurrence: US)
  Receive Date: 20130415
  Receipt Date: 20130415
  Transmission Date: 20140414
  Serious: No
  Sender: FDA-Public Use
  Company Number: US-BAYER-2013-046915

PATIENT
  Age: 74 Year
  Sex: Female

DRUGS (1)
  1. CIPRO [Suspect]
     Indication: CYSTITIS
     Dosage: 250 MG, UNK
     Route: 048
     Dates: start: 20130328, end: 20130330

REACTIONS (1)
  - Dizziness [Recovered/Resolved]
